FAERS Safety Report 19272456 (Version 2)
Quarter: 2021Q2

REPORT INFORMATION
  Report Type: Report from Study
  Country: MX (occurrence: MX)
  Receive Date: 20210518
  Receipt Date: 20210601
  Transmission Date: 20210717
  Serious: No
  Sender: FDA-Public Use
  Company Number: NVSC2021MX106386

PATIENT
  Sex: Female
  Weight: 88 kg

DRUGS (1)
  1. DIOVAN [Suspect]
     Active Substance: VALSARTAN
     Indication: HYPERTENSION
     Dosage: 1 DF, BID
     Route: 048
     Dates: start: 202102

REACTIONS (4)
  - Wrong technique in product usage process [Unknown]
  - Hypotension [Unknown]
  - Off label use [Unknown]
  - Hypertension [Unknown]
